FAERS Safety Report 5385890-0 (Version None)
Quarter: 2007Q3

REPORT INFORMATION
  Report Type: 
  Country: None (occurrence: None)
  Receive Date: 20070710
  Receipt Date: 20070626
  Transmission Date: 20080115
  Serious: Yes (Death)
  Sender: FDA-Public Use
  Company Number: A-CH2006-12443

PATIENT
  Age: 51 Year
  Sex: Female

DRUGS (1)
  1. TRACLEER [Suspect]
     Indication: SKIN ULCER
     Dosage: 125 MG, BID, ORAL
     Route: 048

REACTIONS (10)
  - CARDIAC FAILURE [None]
  - CARDIAC TAMPONADE [None]
  - DISEASE PROGRESSION [None]
  - IATROGENIC INFECTION [None]
  - PANCREATITIS NECROTISING [None]
  - PERICARDIAL EFFUSION [None]
  - RESPIRATORY FAILURE [None]
  - SEPSIS [None]
  - SYSTEMIC SCLEROSIS [None]
  - VENTRICLE RUPTURE [None]
